FAERS Safety Report 13035965 (Version 1)
Quarter: 2016Q4

REPORT INFORMATION
  Report Type: Spontaneous
  Country: GB (occurrence: GB)
  Receive Date: 20161216
  Receipt Date: 20161216
  Transmission Date: 20170207
  Serious: Yes (Other)
  Sender: FDA-Public Use
  Company Number: GB-BAYER-2016-233876

PATIENT
  Age: 40 Year
  Sex: Female
  Weight: 73.47 kg

DRUGS (1)
  1. MIRENA [Suspect]
     Active Substance: LEVONORGESTREL
     Indication: HORMONE LEVEL ABNORMAL
     Dosage: 20 MCG/24HR, CONT
     Route: 015
     Dates: start: 20160902

REACTIONS (2)
  - Eye pruritus [None]
  - Dry eye [Not Recovered/Not Resolved]

NARRATIVE: CASE EVENT DATE: 20160902
